FAERS Safety Report 9498776 (Version 1)
Quarter: 2013Q3

REPORT INFORMATION
  Report Type: Spontaneous
  Country: US (occurrence: None)
  Receive Date: 20130830
  Receipt Date: 20130830
  Transmission Date: 20140515
  Serious: Yes (Hospitalization, Other)
  Sender: FDA-Public Use
  Company Number: ACO_38084_2013

PATIENT
  Age: 73 Year
  Sex: Female
  Weight: 48.5 kg

DRUGS (5)
  1. AMPYRA [Suspect]
     Indication: GAIT DISTURBANCE
     Route: 048
     Dates: start: 201308, end: 20130816
  2. COPAXONE (GLATIRAMER ACETATE) [Concomitant]
  3. CLONAZEPAM (CLONAZEPAM) (CLONAZEPAM) [Concomitant]
  4. VESICARE (SOLIFENACIN SUCCINATE) [Concomitant]
  5. PROVIGIL (MODAFINIL) [Concomitant]

REACTIONS (9)
  - Abasia [None]
  - Dysstasia [None]
  - Tremor [None]
  - Muscle spasms [None]
  - Cardiac output decreased [None]
  - Heart valve incompetence [None]
  - Balance disorder [None]
  - Dizziness [None]
  - Multiple sclerosis [None]
